FAERS Safety Report 12456695 (Version 3)
Quarter: 2016Q3

REPORT INFORMATION
  Report Type: Report from Study
  Country: CH (occurrence: CH)
  Receive Date: 20160610
  Receipt Date: 20160722
  Transmission Date: 20161109
  Serious: Yes (Life-Threatening, Hospitalization)
  Sender: FDA-Public Use
  Company Number: CH-CELGENEUS-CHE-2016057192

PATIENT
  Sex: Female

DRUGS (3)
  1. REVLIMID [Suspect]
     Active Substance: LENALIDOMIDE
     Indication: ACUTE MYELOID LEUKAEMIA
     Dosage: 15 MILLIGRAM
     Route: 048
     Dates: start: 20160513, end: 20160516
  2. IDARUBICIN [Suspect]
     Active Substance: IDARUBICIN
     Indication: ACUTE MYELOID LEUKAEMIA
     Route: 065
     Dates: start: 20160513, end: 20160515
  3. CYTARABIN [Suspect]
     Active Substance: CYTARABINE
     Indication: ACUTE MYELOID LEUKAEMIA
     Dosage: 23.5 MILLIGRAM
     Route: 065
     Dates: start: 20160513, end: 20160519

REACTIONS (1)
  - Bacterial colitis [Recovered/Resolved]

NARRATIVE: CASE EVENT DATE: 20160523
